FAERS Safety Report 4439087-9 (Version None)
Quarter: 2004Q3

REPORT INFORMATION
  Report Type: 
  Country: None (occurrence: None)
  Receive Date: 20040830
  Receipt Date: 20040817
  Transmission Date: 20050211
  Serious: Yes (Hospitalization)
  Sender: FDA-Public Use
  Company Number: 2004056537

PATIENT
  Age: 6 Year
  Sex: Female

DRUGS (1)
  1. ZITHROMAX [Suspect]
     Indication: INFECTION PROPHYLAXIS
     Dates: start: 20040805

REACTIONS (1)
  - FOOD POISONING [None]
